FAERS Safety Report 9719144 (Version 1)
Quarter: 2013Q4

REPORT INFORMATION
  Report Type: Spontaneous
  Country: US (occurrence: US)
  Receive Date: 20131127
  Receipt Date: 20131127
  Transmission Date: 20140711
  Serious: Yes (Hospitalization, Other)
  Sender: FDA-Public Use
  Company Number: CHPA2013US017541

PATIENT
  Age: 76 Year
  Sex: Female

DRUGS (2)
  1. VOLTAREN GEL [Suspect]
     Indication: ARTHRALGIA
     Dosage: UNK
     Route: 061
     Dates: end: 201306
  2. VOLTAREN GEL [Suspect]
     Indication: OFF LABEL USE

REACTIONS (5)
  - Gastric haemorrhage [Recovered/Resolved]
  - Vomiting [Recovered/Resolved]
  - Heart rate irregular [Not Recovered/Not Resolved]
  - Arthritis [Unknown]
  - Procedural pain [Not Recovered/Not Resolved]
